FAERS Safety Report 10639855 (Version 4)
Quarter: 2015Q4

REPORT INFORMATION
  Report Type: Report from Study
  Country: US (occurrence: US)
  Receive Date: 20141209
  Receipt Date: 20151009
  Transmission Date: 20160304
  Serious: Yes (Other)
  Sender: FDA-Public Use
  Company Number: US-AMGEN-USASP2014087581

PATIENT
  Age: 52 Year
  Sex: Female

DRUGS (2)
  1. ENBREL [Suspect]
     Active Substance: ETANERCEPT
     Indication: PSORIASIS
     Dosage: 50 MG, QWK
     Route: 065
     Dates: start: 20141028, end: 201507
  2. ENBREL [Suspect]
     Active Substance: ETANERCEPT
     Dosage: UNK
     Route: 065

REACTIONS (9)
  - Palpitations [Not Recovered/Not Resolved]
  - Injection site pain [Recovered/Resolved]
  - Anxiety [Not Recovered/Not Resolved]
  - Sinusitis [Not Recovered/Not Resolved]
  - Bacterial infection [Recovered/Resolved]
  - Urinary tract infection [Not Recovered/Not Resolved]
  - Ear infection [Not Recovered/Not Resolved]
  - Infection [Not Recovered/Not Resolved]
  - Nodule [Recovered/Resolved]

NARRATIVE: CASE EVENT DATE: 20141028
